FAERS Safety Report 24550261 (Version 10)
Quarter: 2024Q4

REPORT INFORMATION
  Report Type: Spontaneous
  Country: US (occurrence: US)
  Receive Date: 20241025
  Receipt Date: 20241212
  Transmission Date: 20250115
  Serious: Yes (Other)
  Sender: ROCHE
  Company Number: US-ROCHE-10000108586

PATIENT
  Age: 79 Year
  Sex: Female

DRUGS (1)
  1. SOMATROPIN [Suspect]
     Active Substance: SOMATROPIN
     Indication: Hypothalamo-pituitary disorder
     Dosage: 10MG/2ML
     Route: 058

REACTIONS (3)
  - Injection site infection [Unknown]
  - Product complaint [Unknown]
  - Suspected transmission of an infectious agent via product [Unknown]
